FAERS Safety Report 9447777 (Version 1)
Quarter: 2013Q3

REPORT INFORMATION
  Report Type: Spontaneous
  Country: FR (occurrence: FR)
  Receive Date: 20130808
  Receipt Date: 20130808
  Transmission Date: 20140515
  Serious: Yes (Hospitalization)
  Sender: FDA-Public Use
  Company Number: FR-ROCHE-1258194

PATIENT
  Age: 86 Year
  Sex: Male

DRUGS (9)
  1. ROCEPHINE [Suspect]
     Indication: SEPSIS
     Route: 042
     Dates: start: 20130608, end: 20130615
  2. OFLOCET (FRANCE) [Suspect]
     Indication: SEPSIS
     Dosage: SCORED COATED TABLET
     Route: 048
     Dates: start: 20130608, end: 20130615
  3. APROVEL [Suspect]
     Indication: SEPSIS
     Route: 048
     Dates: start: 20130608, end: 20130621
  4. COAPROVEL [Suspect]
     Indication: SEPSIS
     Dosage: 150 MG / 12.5 MG
     Route: 048
  5. FUROSEMIDE [Suspect]
     Indication: PRODUCT USED FOR UNKNOWN INDICATION
     Dosage: 20 MG/2 ML INJECTABLE SOLUTION (IM - IV)
     Route: 042
     Dates: start: 20130608, end: 20130617
  6. ESIDREX [Suspect]
     Indication: SEPSIS
     Route: 048
     Dates: start: 20130608, end: 20130617
  7. DANATROL [Suspect]
     Indication: PRODUCT USED FOR UNKNOWN INDICATION
     Dosage: QD
     Route: 048
     Dates: start: 20130425, end: 20130617
  8. KARDEGIC [Suspect]
     Indication: PRODUCT USED FOR UNKNOWN INDICATION
     Dosage: SACHET
     Route: 048
     Dates: start: 20130609, end: 20130621
  9. GRANOCYTE [Concomitant]
     Dosage: 13.4 MILLIONS IU/1 ML PRE-FILLED SYRINGE FOR INJECTABLE SOLUTION OR IV DRIP
     Route: 058
     Dates: start: 20130528

REACTIONS (1)
  - Renal failure acute [Recovering/Resolving]
